FAERS Safety Report 9209077 (Version 1)
Quarter: 2013Q2

REPORT INFORMATION
  Report Type: Report from Study
  Country: FR (occurrence: FR)
  Receive Date: 20130404
  Receipt Date: 20130404
  Transmission Date: 20140414
  Serious: Yes (Hospitalization)
  Sender: FDA-Public Use
  Company Number: PHHY2013FR032151

PATIENT
  Age: 66 Year
  Sex: Male
  Weight: 79 kg

DRUGS (3)
  1. MYCOPHENOLATE MOFETIL [Suspect]
     Indication: RENAL TRANSPLANT
     Dosage: 2 G, QD
     Route: 048
     Dates: start: 20130121
  2. EVEROLIMUS [Suspect]
     Indication: RENAL TRANSPLANT
     Dosage: 4.5 MG, QD
     Route: 048
     Dates: start: 20130120, end: 20130304
  3. PREDNISONE [Suspect]
     Indication: RENAL TRANSPLANT
     Dosage: 5 MG, QD
     Route: 048
     Dates: start: 20130122

REACTIONS (1)
  - Urinoma [Recovering/Resolving]
